FAERS Safety Report 7270149-7 (Version None)
Quarter: 2011Q1

REPORT INFORMATION
  Report Type: 
  Country: None (occurrence: None)
  Receive Date: 20110202
  Receipt Date: 20110126
  Transmission Date: 20110831
  Serious: Yes (Hospitalization)
  Sender: FDA-Public Use
  Company Number: BR-US-EMD SERONO, INC.-7038675

PATIENT
  Sex: Female

DRUGS (4)
  1. PARACETAMOL [Concomitant]
  2. DIANE [Concomitant]
  3. EXODUS [Concomitant]
  4. REBIF [Suspect]
     Indication: RELAPSING-REMITTING MULTIPLE SCLEROSIS
     Dates: start: 20100801

REACTIONS (4)
  - INJECTION SITE ERYTHEMA [None]
  - FATIGUE [None]
  - URINARY TRACT INFECTION [None]
  - HYPOAESTHESIA [None]
